FAERS Safety Report 24352255 (Version 1)
Quarter: 2024Q3

REPORT INFORMATION
  Report Type: Report from Study
  Country: IT (occurrence: IT)
  Receive Date: 20240923
  Receipt Date: 20240923
  Transmission Date: 20241017
  Serious: No
  Sender: ROCHE
  Company Number: IT-ROCHE-3363045

PATIENT
  Age: 64 Year
  Sex: Female

DRUGS (24)
  1. HERCEPTIN [Suspect]
     Active Substance: TRASTUZUMAB
     Indication: HER2 positive breast cancer
     Route: 042
     Dates: start: 20180102, end: 20201116
  2. PERJETA [Suspect]
     Active Substance: PERTUZUMAB
     Indication: HER2 positive breast cancer
     Route: 042
     Dates: start: 20180102, end: 20201116
  3. KADCYLA [Suspect]
     Active Substance: ADO-TRASTUZUMAB EMTANSINE
     Indication: HER2 positive breast cancer
     Route: 042
     Dates: start: 20201207, end: 20220214
  4. KADCYLA [Suspect]
     Active Substance: ADO-TRASTUZUMAB EMTANSINE
     Route: 042
     Dates: start: 20220214, end: 20230515
  5. TAXOTERE [Suspect]
     Active Substance: DOCETAXEL
     Indication: HER2 positive breast cancer
     Route: 042
     Dates: start: 20171211, end: 20180327
  6. FEMARA [Suspect]
     Active Substance: LETROZOLE
     Indication: HER2 positive breast cancer
     Route: 048
     Dates: start: 20180416, end: 20181210
  7. AROMASIN [Suspect]
     Active Substance: EXEMESTANE
     Indication: HER2 positive breast cancer
     Route: 048
     Dates: start: 20181211, end: 20201207
  8. ATORVASTATIN [Concomitant]
     Active Substance: ATORVASTATIN
     Dosage: ONGOING = CHECKED
  9. KEFIBIOS [Concomitant]
     Dosage: ONGOING = CHECKED
     Dates: start: 20171231
  10. RAMIPRIL [Concomitant]
     Active Substance: RAMIPRIL
     Dosage: ONGOING = CHECKED
     Dates: start: 20190304
  11. LANSOPRAZOLE [Concomitant]
     Active Substance: LANSOPRAZOLE
     Dosage: ONGOING = CHECKED
     Dates: start: 20191105
  12. FUROSEMIDE [Concomitant]
     Active Substance: FUROSEMIDE
     Dosage: ONGOING = CHECKED
     Dates: start: 20200608
  13. CHLORPHENIRAMINE MALEATE [Concomitant]
     Active Substance: CHLORPHENIRAMINE MALEATE
  14. DEXAMETHASONE [Concomitant]
     Active Substance: DEXAMETHASONE
  15. LEVOSULPIRIDE [Concomitant]
     Active Substance: LEVOSULPIRIDE
  16. PREDNISONE [Concomitant]
     Active Substance: PREDNISONE
  17. DEXAMETHASONE [Concomitant]
     Active Substance: DEXAMETHASONE
  18. FILGRASTIM [Concomitant]
     Active Substance: FILGRASTIM
  19. RANITIDINE [Concomitant]
     Active Substance: RANITIDINE
  20. MYCOSTATIN [Concomitant]
     Active Substance: NYSTATIN
  21. MAGNESIUM [Concomitant]
     Active Substance: MAGNESIUM
  22. PALEXIA [Concomitant]
     Active Substance: TAPENTADOL HYDROCHLORIDE
  23. LASIX [Concomitant]
     Active Substance: FUROSEMIDE
  24. PREGABALIN [Concomitant]
     Active Substance: PREGABALIN

REACTIONS (1)
  - Cardiotoxicity [Recovered/Resolved]

NARRATIVE: CASE EVENT DATE: 20230605
